FAERS Safety Report 16222838 (Version 1)
Quarter: 2019Q2

REPORT INFORMATION
  Report Type: Spontaneous
  Country: US (occurrence: US)
  Receive Date: 20190422
  Receipt Date: 20190422
  Transmission Date: 20190711
  Serious: No
  Sender: FDA-Public Use
  Company Number: US-PFIZER INC-2015269292

PATIENT
  Age: 6 Month
  Sex: Male
  Weight: 6.6 kg

DRUGS (5)
  1. GENOTROPIN MQ [Suspect]
     Active Substance: SOMATROPIN
     Indication: GROWTH ACCELERATED
     Dosage: 0.2 ML, 1X/DAY
     Dates: start: 20150715
  2. ZANTAC [Concomitant]
     Active Substance: RANITIDINE HYDROCHLORIDE
     Indication: GASTROOESOPHAGEAL REFLUX DISEASE
     Dosage: 1 ML, 3X/DAY (HAS TAKEN FOR TWO MONTHS)
  3. GENOTROPIN MQ [Suspect]
     Active Substance: SOMATROPIN
     Indication: MULTIPLE CONGENITAL ABNORMALITIES
  4. GENOTROPIN MQ [Suspect]
     Active Substance: SOMATROPIN
     Indication: PRADER-WILLI SYNDROME
     Dosage: 0.6 MG, 1X/DAY (AT BEDTIME)
     Route: 058
     Dates: start: 20150708
  5. TRI VI SOL [Concomitant]
     Dosage: SINCE BIRTH

REACTIONS (1)
  - Diarrhoea [Recovering/Resolving]
